FAERS Safety Report 18288078 (Version 1)
Quarter: 2020Q3

REPORT INFORMATION
  Report Type: Spontaneous
  Country: US (occurrence: US)
  Receive Date: 20200918
  Receipt Date: 20200918
  Transmission Date: 20201103
  Serious: Yes (Hospitalization)
  Sender: FDA-Public Use
  Company Number: None

PATIENT
  Age: 62 Year
  Sex: Female

DRUGS (1)
  1. BENLYSTA [Suspect]
     Active Substance: BELIMUMAB
     Indication: SYSTEMIC LUPUS ERYTHEMATOSUS
     Route: 058
     Dates: start: 202008, end: 202009

REACTIONS (6)
  - Brain compression [None]
  - Muscle spasms [None]
  - Chest discomfort [None]
  - Headache [None]
  - Blood pressure increased [None]
  - Therapy interrupted [None]

NARRATIVE: CASE EVENT DATE: 20200901
